FAERS Safety Report 4557809-3 (Version None)
Quarter: 2005Q1

REPORT INFORMATION
  Report Type: 
  Country: None (occurrence: None)
  Receive Date: 20050121
  Receipt Date: 20050114
  Transmission Date: 20050727
  Serious: Yes (Hospitalization)
  Sender: FDA-Public Use
  Company Number: PHEH2005US00935

PATIENT
  Sex: Female

DRUGS (1)
  1. AREDIA [Suspect]

REACTIONS (5)
  - ASTHENIA [None]
  - BLOOD MAGNESIUM DECREASED [None]
  - BLOOD POTASSIUM DECREASED [None]
  - HYPOAESTHESIA [None]
  - INFLUENZA LIKE ILLNESS [None]
